FAERS Safety Report 5788808-1 (Version None)
Quarter: 2008Q2

REPORT INFORMATION
  Report Type: 
  Country: None (occurrence: None)
  Receive Date: 20080618
  Receipt Date: 20071205
  Transmission Date: 20081010
  Serious: Yes (Other)
  Sender: FDA-Public Use
  Company Number: 200718542US

PATIENT
  Age: 66 Year
  Sex: Male
  Weight: 61.23 kg

DRUGS (2)
  1. INSULIN GLARGINE (LANTUS0 SOLUTION FOR INJECTION [Suspect]
     Indication: TYPE 1 DIABETES MELLITUS
     Dosage: 11 U INJ
     Dates: start: 20040101
  2. GLUCOSE [Concomitant]

REACTIONS (6)
  - DIZZINESS [None]
  - HYPERHIDROSIS [None]
  - HYPOGLYCAEMIA [None]
  - INCORRECT ROUTE OF DRUG ADMINISTRATION [None]
  - INJECTION SITE HAEMORRHAGE [None]
  - VISION BLURRED [None]
